FAERS Safety Report 6378848-6 (Version None)
Quarter: 2009Q3

REPORT INFORMATION
  Report Type: 
  Country: None (occurrence: None)
  Receive Date: 20090928
  Receipt Date: 20090728
  Transmission Date: 20100115
  Serious: No
  Sender: FDA-Public Use
  Company Number: US-BAYER-200928822NA

PATIENT
  Sex: Female

DRUGS (3)
  1. CLIMARA [Suspect]
     Indication: DRUG USE FOR UNKNOWN INDICATION
     Route: 062
  2. PRILOSEC [Concomitant]
     Indication: GASTROOESOPHAGEAL REFLUX DISEASE
     Dates: start: 20090101
  3. METOPROLOL TARTRATE [Concomitant]
     Indication: HEART RATE IRREGULAR
     Dates: start: 20090101

REACTIONS (1)
  - HOT FLUSH [None]
